FAERS Safety Report 12356055 (Version 1)
Quarter: 2016Q2

REPORT INFORMATION
  Report Type: Spontaneous
  Country: None (occurrence: US)
  Receive Date: 20160511
  Receipt Date: 20160511
  Transmission Date: 20160815
  Serious: No
  Sender: FDA-Public Use
  Company Number: US-QOL MEDICAL, LLC-1051918

PATIENT
  Age: 15 Year
  Sex: Male
  Weight: 68.18 kg

DRUGS (8)
  1. IGG [Concomitant]
     Active Substance: HUMAN IMMUNOGLOBULIN G
  2. PHENERGAN [Concomitant]
     Active Substance: PROMETHAZINE HYDROCHLORIDE
  3. SUCRAID [Suspect]
     Active Substance: SACROSIDASE
     Indication: SUCRASE-ISOMALTASE DEFICIENCY
     Route: 048
     Dates: start: 2014, end: 20151030
  4. NEUTROGENA T/GEL THERAPEUTIC [Concomitant]
     Active Substance: COAL TAR\PYRITHIONE ZINC\SALICYLIC ACID
     Route: 061
  5. LACTAID [Concomitant]
     Active Substance: LACTASE
  6. TYLENOL [Concomitant]
     Active Substance: ACETAMINOPHEN
  7. ZOFRAN [Concomitant]
     Active Substance: ONDANSETRON HYDROCHLORIDE
  8. BENADRYL [Concomitant]
     Active Substance: DIPHENHYDRAMINE HYDROCHLORIDE

REACTIONS (4)
  - Abdominal pain [Recovered/Resolved]
  - Product colour issue [None]
  - Diarrhoea [Recovered/Resolved]
  - Pneumonia [None]

NARRATIVE: CASE EVENT DATE: 20151001
